FAERS Safety Report 4266962-0 (Version None)
Quarter: 2004Q1

REPORT INFORMATION
  Report Type: 
  Country: None (occurrence: None)
  Receive Date: 20040107
  Receipt Date: 20031225
  Transmission Date: 20041129
  Serious: Yes (Hospitalization)
  Sender: FDA-Public Use
  Company Number: 2003121908

PATIENT
  Age: 64 Year
  Sex: Female
  Weight: 47 kg

DRUGS (8)
  1. DIFLUCAN [Suspect]
     Indication: PNEUMONIA
     Dosage: 200 MG (DAILY), INTRAVENOUS
     Route: 042
     Dates: start: 20031117, end: 20031120
  2. DEXTROMETHORPHAN HYDROBROMIDE (DEXTROMETHORPHAN HYDROBROMIDE) [Suspect]
     Indication: ILL-DEFINED DISORDER
     Dosage: 180 MG, ORAL
     Route: 048
     Dates: start: 20031114
  3. CIPROFLOXACIN HCL [Suspect]
     Indication: PNEUMONIA
     Dosage: 600 MG (BID), INTRAVENOUS
     Route: 042
     Dates: start: 20031117, end: 20031120
  4. ARBEKACIN (ARBEKACIN) [Suspect]
     Indication: PNEUMONIA
     Dosage: 200 MG (BID), INTRAVENOUS
     Route: 042
     Dates: start: 20031117, end: 20031120
  5. CLARITHROMYCIN [Suspect]
     Indication: PNEUMONIA
     Dosage: (BID), ORAL
     Route: 048
     Dates: start: 20031110, end: 20031116
  6. TIENAM (IMIPENEM, CILASTATIN) [Concomitant]
  7. CLOTRIMAZOLE (CLOTRIMAZOLE) [Concomitant]
  8. VANCOMYCIN [Concomitant]

REACTIONS (9)
  - BLOOD ALKALINE PHOSPHATASE INCREASED [None]
  - BLOOD CREATININE DECREASED [None]
  - BLOOD LACTATE DEHYDROGENASE INCREASED [None]
  - EXANTHEM [None]
  - FUNGAEMIA [None]
  - HAEMATOCRIT DECREASED [None]
  - PLATELET COUNT DECREASED [None]
  - RASH [None]
  - WHITE BLOOD CELL COUNT DECREASED [None]
